FAERS Safety Report 10052175 (Version 2)
Quarter: 2014Q2

REPORT INFORMATION
  Report Type: Report from Study
  Country: AU (occurrence: AU)
  Receive Date: 20140402
  Receipt Date: 20140402
  Transmission Date: 20141212
  Serious: Yes (Other)
  Sender: FDA-Public Use
  Company Number: AU-ROCHE-1321930

PATIENT
  Age: 56 Year
  Sex: Female
  Weight: 60 kg

DRUGS (9)
  1. ACTEMRA [Suspect]
     Indication: RHEUMATOID ARTHRITIS
     Route: 042
     Dates: start: 20130731
  2. ACTEMRA [Suspect]
     Route: 042
     Dates: end: 20140325
  3. ACTEMRA [Suspect]
     Route: 042
  4. ACTEMRA [Suspect]
     Route: 042
     Dates: start: 20131029
  5. ACTEMRA [Suspect]
     Route: 042
     Dates: start: 20131029, end: 20140327
  6. PANADEINE [Concomitant]
     Indication: RHEUMATOID ARTHRITIS
     Dosage: 2 TABLETS, BD PRN, ONGOING
     Route: 065
  7. EZETIMIBE [Concomitant]
     Indication: HYPERLIPIDAEMIA
     Route: 065
     Dates: start: 20120101
  8. CHOLECALCIFEROL [Concomitant]
     Indication: VITAMIN D DEFICIENCY
     Route: 065
     Dates: start: 20131030
  9. HYDROXYCHLOROQUINE SULFATE [Concomitant]
     Indication: RHEUMATOID ARTHRITIS
     Route: 065
     Dates: start: 20140206

REACTIONS (2)
  - Liver function test abnormal [Unknown]
  - Liver function test abnormal [Unknown]
